FAERS Safety Report 7565162-6 (Version None)
Quarter: 2011Q2

REPORT INFORMATION
  Report Type: 
  Country: None (occurrence: None)
  Receive Date: 20110622
  Receipt Date: 20110606
  Transmission Date: 20111010
  Serious: Yes (Hospitalization, Other)
  Sender: FDA-Public Use
  Company Number: PHHY2011US30209

PATIENT
  Sex: Male
  Weight: 13.3 kg

DRUGS (2)
  1. ILARIS [Suspect]
     Indication: HYPERGLOBULINAEMIA
     Dosage: 60 MG, FOR EVERY 8 WEEKS
     Route: 058
     Dates: start: 20101201
  2. ILARIS [Suspect]
     Dosage: 90 MG, FOR EVERY 8 WEEKS
     Route: 058

REACTIONS (5)
  - PNEUMONIA [None]
  - BACTERAEMIA [None]
  - RESPIRATORY DISTRESS [None]
  - CYTOKINE STORM [None]
  - PHARYNGITIS STREPTOCOCCAL [None]
